FAERS Safety Report 17439525 (Version 1)
Quarter: 2020Q1

REPORT INFORMATION
  Report Type: Spontaneous
  Country: US (occurrence: US)
  Receive Date: 20200219
  Receipt Date: 20200219
  Transmission Date: 20200409
  Serious: Yes (Other)
  Sender: FDA-Public Use
  Company Number: None

PATIENT
  Age: 31 Year
  Sex: Female
  Weight: 149 kg

DRUGS (7)
  1. METFORMIN [Suspect]
     Active Substance: METFORMIN HYDROCHLORIDE
     Indication: CARDIOMETABOLIC SYNDROME
     Route: 048
  2. LEVOTHYROXINE 50MCG DAILY [Concomitant]
  3. LISINOPRIL 10MG DAILY [Concomitant]
  4. ATORVASTATIN 10MG DAILY [Concomitant]
     Active Substance: ATORVASTATIN
  5. OMELPRAZOLE 20MG DAILY [Concomitant]
  6. CARBAMAZEPINE 400MG BID ER [Concomitant]
  7. PALIPERIDONE 9MG DAILY [Concomitant]

REACTIONS (1)
  - Lactic acidosis [None]

NARRATIVE: CASE EVENT DATE: 20200202
